FAERS Safety Report 7940259-7 (Version None)
Quarter: 2011Q4

REPORT INFORMATION
  Report Type: 
  Country: None (occurrence: None)
  Receive Date: 20111126
  Receipt Date: 20110919
  Transmission Date: 20120403
  Serious: No
  Sender: FDA-Public Use
  Company Number: US-BAYER-2011-091210

PATIENT
  Age: 86 Year
  Sex: Female
  Weight: 68 kg

DRUGS (6)
  1. CALCIUM [Concomitant]
  2. NEXIUM [Concomitant]
  3. ASCORBIC ACID [Concomitant]
  4. ALEVE (CAPLET) [Suspect]
     Dosage: 2 DF, BID
     Route: 048
  5. MAGNESIUM SULFATE [Concomitant]
  6. VITAMIN E [Concomitant]

REACTIONS (1)
  - NO ADVERSE EVENT [None]
